FAERS Safety Report 6583423-4 (Version None)
Quarter: 2010Q1

REPORT INFORMATION
  Report Type: 
  Country: None (occurrence: None)
  Receive Date: 20100216
  Receipt Date: 20100208
  Transmission Date: 20100710
  Serious: Yes (Other)
  Sender: FDA-Public Use
  Company Number: BR-ABBOTT-10P-020-0625039-00

PATIENT
  Sex: Female
  Weight: 74 kg

DRUGS (4)
  1. REDUCTIL 10MG [Suspect]
     Indication: ANXIETY
     Route: 048
     Dates: start: 20090101
  2. REDUCTIL 10MG [Suspect]
     Indication: HUNGER
  3. REDUCTIL 10MG [Suspect]
     Indication: PROPHYLAXIS
  4. LOSARTAN POTASSIUM [Concomitant]
     Indication: BLOOD PRESSURE
     Dates: start: 20090101

REACTIONS (6)
  - ANGER [None]
  - HALLUCINATION [None]
  - INVESTIGATION ABNORMAL [None]
  - IRRITABILITY [None]
  - NERVOUSNESS [None]
  - SELF-INJURIOUS IDEATION [None]
